FAERS Safety Report 5605943-9 (Version None)
Quarter: 2008Q1

REPORT INFORMATION
  Report Type: 
  Country: None (occurrence: None)
  Receive Date: 20080129
  Receipt Date: 20080122
  Transmission Date: 20080703
  Serious: Yes (Hospitalization)
  Sender: FDA-Public Use
  Company Number: ES-AVENTIS-200810840GDDC

PATIENT
  Age: 61 Year
  Sex: Female

DRUGS (7)
  1. METFORMIN HCL [Suspect]
     Indication: DIABETES MELLITUS
     Dosage: DOSE: UNK
  2. GLIBENCLAMIDE [Suspect]
     Dosage: DOSE: UNK
  3. LEVOTHYROXINE SODIUM [Suspect]
     Dosage: DOSE: UNK
  4. CAPTOPRIL [Suspect]
     Dosage: DOSE: UNK
  5. DICLOFENAC [Suspect]
     Dosage: DOSE: UNK
  6. NAPROXEN [Suspect]
     Dosage: DOSE: UNK
  7. ROFECOXIB [Suspect]
     Dosage: DOSE: UNK

REACTIONS (1)
  - LACTIC ACIDOSIS [None]
